FAERS Safety Report 16699660 (Version 3)
Quarter: 2020Q3

REPORT INFORMATION
  Report Type: Report from Study
  Country: JP (occurrence: JP)
  Receive Date: 20190813
  Receipt Date: 20200901
  Transmission Date: 20201102
  Serious: Yes (Hospitalization)
  Sender: FDA-Public Use
  Company Number: JP-PFIZER INC-2017508797

PATIENT
  Age: 79 Year
  Sex: Female
  Weight: 44 kg

DRUGS (29)
  1. METHOTREXATE. [Suspect]
     Active Substance: METHOTREXATE
     Dosage: 6 MG, WEEKLY
     Dates: start: 20170510
  2. KENACORT A [Concomitant]
     Dosage: UNK
     Dates: start: 20170313, end: 20170313
  3. KENACORT A [Concomitant]
     Indication: RHEUMATOID ARTHRITIS
     Dosage: UNK
     Dates: start: 20170113, end: 20170113
  4. CELECOX [Concomitant]
     Active Substance: CELECOXIB
     Indication: RHEUMATOID ARTHRITIS
     Dosage: 200 MG, DAILY
     Route: 048
     Dates: start: 20170825
  5. SYNVISC [Concomitant]
     Active Substance: HYLAN G-F 20
     Dosage: UNK
     Dates: start: 20170323
  6. XELJANZ [Suspect]
     Active Substance: TOFACITINIB CITRATE
     Indication: RHEUMATOID ARTHRITIS
     Dosage: 5 MG, 2X/DAY
     Dates: start: 20170113, end: 20170131
  7. ARASENA A [Concomitant]
     Active Substance: VIDARABINE
     Indication: ORAL HERPES
     Dosage: UNK
     Route: 061
  8. BONALON [Concomitant]
     Active Substance: ALENDRONATE SODIUM
     Dosage: UNK
     Route: 048
     Dates: start: 20170323
  9. GENTACIN [Concomitant]
     Active Substance: GENTAMICIN SULFATE
     Indication: DRUG ERUPTION
     Dosage: UNK
     Route: 061
  10. KENACORT A [Concomitant]
     Dosage: UNK
     Dates: start: 20170414, end: 20170414
  11. KENACORT A [Concomitant]
     Dosage: UNK
     Dates: start: 20170510, end: 20170510
  12. CARERAM [Concomitant]
     Active Substance: IGURATIMOD
     Indication: RHEUMATOID ARTHRITIS
     Dosage: UNK
     Dates: start: 20170203, end: 20180911
  13. AURANOFIN [Concomitant]
     Active Substance: AURANOFIN
     Dosage: UNK
     Dates: start: 20181031
  14. FOLIAMIN [Concomitant]
     Active Substance: FOLIC ACID
     Route: 048
  15. METHYCOBAL [Concomitant]
     Active Substance: METHYLCOBALAMIN
     Indication: ORAL HERPES
     Dosage: UNK
     Route: 048
  16. KENACORT A [Concomitant]
     Dosage: UNK
     Dates: start: 20181031
  17. XELJANZ [Suspect]
     Active Substance: TOFACITINIB CITRATE
     Dosage: 5 MG, 2X/DAY
     Dates: start: 20170207
  18. METHOTREXATE. [Suspect]
     Active Substance: METHOTREXATE
     Dosage: 5 MG, WEEKLY
     Dates: end: 20170112
  19. FLOMOX [Concomitant]
     Indication: DRUG ERUPTION
     Dosage: UNK
     Route: 048
  20. VALTREX [Concomitant]
     Active Substance: VALACYCLOVIR HYDROCHLORIDE
     Indication: ORAL HERPES
     Dosage: UNK
     Route: 048
  21. CALONAL [Concomitant]
     Active Substance: ACETAMINOPHEN
     Indication: ORAL HERPES
     Dosage: UNK
     Route: 048
  22. METHOTREXATE. [Suspect]
     Active Substance: METHOTREXATE
     Dosage: 7.5 MG, WEEKLY
     Dates: start: 20170113, end: 20170209
  23. BENET [Concomitant]
     Active Substance: RISEDRONATE SODIUM
     Dosage: UNK
     Route: 048
  24. ISODINE [Concomitant]
     Active Substance: POVIDONE-IODINE
     Indication: DRUG ERUPTION
     Dosage: UNK
     Route: 061
  25. TAKEPRON [Concomitant]
     Active Substance: LANSOPRAZOLE
     Route: 048
  26. LYRICA [Concomitant]
     Active Substance: PREGABALIN
     Indication: ORAL HERPES
     Dosage: UNK
     Route: 048
  27. KENACORT A [Concomitant]
     Dosage: UNK
     Dates: start: 20170203, end: 20170203
  28. KENACORT A [Concomitant]
     Dosage: UNK
     Dates: start: 20170607, end: 20170607
  29. EDIROL [Concomitant]
     Active Substance: ELDECALCITOL
     Indication: OSTEOPOROSIS
     Dosage: UNK
     Route: 048
     Dates: start: 20180620

REACTIONS (2)
  - Stomatitis [Recovered/Resolved]
  - Diverticulum intestinal [Recovered/Resolved]

NARRATIVE: CASE EVENT DATE: 201702
